FAERS Safety Report 22298235 (Version 2)
Quarter: 2023Q2

REPORT INFORMATION
  Report Type: Spontaneous
  Country: NL (occurrence: None)
  Receive Date: 20230509
  Receipt Date: 20230527
  Transmission Date: 20230722
  Serious: Yes (Other)
  Sender: FDA-Public Use
  Company Number: None

PATIENT
  Sex: Male
  Weight: 85 kg

DRUGS (4)
  1. ATORVASTATIN [Suspect]
     Active Substance: ATORVASTATIN
     Indication: Hypercholesterolaemia
     Dosage: STRENGTH: 40MG, 1X PER DAY 1 PIECE
     Dates: start: 20230219, end: 20230404
  2. ASPIRIN [Concomitant]
     Active Substance: ASPIRIN
     Dosage: STRENGTH: 80MG
  3. EZETIMIBE [Concomitant]
     Active Substance: EZETIMIBE
     Dosage: STRENGTH: 10MG
  4. METOPROLOL [Concomitant]
     Active Substance: METOPROLOL
     Dosage: STRENGHT:  25MG

REACTIONS (2)
  - Tinnitus [Unknown]
  - Hypoacusis [Recovered/Resolved]
